FAERS Safety Report 9922631 (Version 2)
Quarter: 2014Q1

REPORT INFORMATION
  Report Type: Report from Study
  Country: BR (occurrence: BR)
  Receive Date: 20140225
  Receipt Date: 20140225
  Transmission Date: 20141002
  Serious: Yes (Other)
  Sender: FDA-Public Use
  Company Number: BR-ABBVIE-13P-020-1166462-00

PATIENT
  Sex: Female
  Weight: 68 kg

DRUGS (7)
  1. HUMIRA [Suspect]
     Indication: RHEUMATOID ARTHRITIS
     Route: 058
     Dates: start: 20130814
  2. MESALAZINE [Concomitant]
     Indication: GASTROINTESTINAL DISORDER
     Route: 048
  3. AZATHIOPRINE [Concomitant]
     Indication: GASTROINTESTINAL DISORDER
     Route: 048
  4. ENALAPRIL [Concomitant]
     Indication: BLOOD PRESSURE
     Route: 048
     Dates: start: 2000
  5. INSULIN [Concomitant]
     Indication: PRODUCT USED FOR UNKNOWN INDICATION
     Route: 058
     Dates: start: 2011
  6. FLUOXETINE [Concomitant]
     Indication: ANXIETY
     Route: 048
  7. FLUOXETINE [Concomitant]
     Indication: NERVOUSNESS

REACTIONS (1)
  - Breast mass [Recovered/Resolved]
